FAERS Safety Report 5886179-3 (Version None)
Quarter: 2008Q3

REPORT INFORMATION
  Report Type: 
  Country: None (occurrence: None)
  Receive Date: 20080917
  Receipt Date: 20080908
  Transmission Date: 20090109
  Serious: Yes (Hospitalization)
  Sender: FDA-Public Use
  Company Number: US-WATSON-2008-05387

PATIENT
  Age: 42 Year
  Sex: Female

DRUGS (2)
  1. LIDOCAINE 1% W/ EPINEPHRINE 1:200,000 [Suspect]
     Indication: ANAPHYLACTOID REACTION
     Dosage: 0.3 MG, SINGLE X 2
     Route: 058
     Dates: start: 20080101, end: 20080101
  2. DIPHENHYDRAMINE HCL [Concomitant]
     Indication: ANAPHYLACTOID REACTION
     Dosage: UNK
     Route: 065
     Dates: start: 20080101, end: 20080101

REACTIONS (1)
  - STRESS CARDIOMYOPATHY [None]
